FAERS Safety Report 15813885 (Version 1)
Quarter: 2019Q1

REPORT INFORMATION
  Report Type: Spontaneous
  Country: US (occurrence: US)
  Receive Date: 20190111
  Receipt Date: 20190111
  Transmission Date: 20190417
  Serious: Yes (Hospitalization)
  Sender: FDA-Public Use
  Company Number: US-PFIZER INC-2019011256

PATIENT
  Age: 29 Year
  Sex: Male
  Weight: 87 kg

DRUGS (2)
  1. PRILOSEC [Concomitant]
     Active Substance: OMEPRAZOLE MAGNESIUM
     Indication: REFLUX GASTRITIS
     Dosage: UNK
  2. ZOLOFT [Suspect]
     Active Substance: SERTRALINE HYDROCHLORIDE
     Indication: ANXIETY
     Dosage: 150 MG, 1X/DAY [ONE TIME AT NIGHT]
     Route: 048

REACTIONS (4)
  - Hallucination, auditory [Unknown]
  - Feeling abnormal [Unknown]
  - Hallucination [Unknown]
  - Pain [Unknown]
